FAERS Safety Report 25866715 (Version 1)
Quarter: 2025Q3

REPORT INFORMATION
  Report Type: Spontaneous
  Country: EU (occurrence: EU)
  Receive Date: 20250930
  Receipt Date: 20250930
  Transmission Date: 20251021
  Serious: Yes (Hospitalization)
  Sender: JOHNSON AND JOHNSON
  Company Number: None

PATIENT
  Age: 76 Year
  Sex: Male
  Weight: 76 kg

DRUGS (3)
  1. DARZALEX [Suspect]
     Active Substance: DARATUMUMAB
     Indication: Primary amyloidosis
     Route: 042
     Dates: start: 20230608, end: 20250311
  2. VELCADE [Suspect]
     Active Substance: BORTEZOMIB
     Indication: Primary amyloidosis
     Route: 042
     Dates: start: 20230608, end: 20230720
  3. CYCLOPHOSPHAMIDE [Suspect]
     Active Substance: CYCLOPHOSPHAMIDE
     Indication: Primary amyloidosis
     Route: 042
     Dates: start: 20230608, end: 20230720

REACTIONS (1)
  - Malignant melanoma [Recovered/Resolved]

NARRATIVE: CASE EVENT DATE: 20250616
